FAERS Safety Report 7676678-6 (Version None)
Quarter: 2011Q3

REPORT INFORMATION
  Report Type: 
  Country: None (occurrence: None)
  Receive Date: 20110805
  Receipt Date: 20110725
  Transmission Date: 20111222
  Serious: Yes (Other)
  Sender: FDA-Public Use
  Company Number: JHP201100375

PATIENT

DRUGS (1)
  1. EPINEPHRINE [Suspect]
     Dosage: 1:10,000 CONCENTRATION INTO THE NASAL MUCOSA, INJECTION

REACTIONS (4)
  - VENTRICULAR TACHYCARDIA [None]
  - DRUG ADMINISTRATION ERROR [None]
  - DRUG DISPENSING ERROR [None]
  - VENTRICULAR EXTRASYSTOLES [None]
